FAERS Safety Report 7371779-4 (Version None)
Quarter: 2011Q1

REPORT INFORMATION
  Report Type: 
  Country: None (occurrence: None)
  Receive Date: 20110324
  Receipt Date: 20110317
  Transmission Date: 20110831
  Serious: Yes (Hospitalization, Other)
  Sender: FDA-Public Use
  Company Number: US-ROCHE-763826

PATIENT
  Sex: Female

DRUGS (4)
  1. LIDODERM [Concomitant]
  2. PEGASYS [Suspect]
     Indication: HEPATITIS C
     Dosage: PRE-FILLED SYRINGE
     Route: 058
     Dates: start: 20110208
  3. RIBAVIRIN [Suspect]
     Indication: HEPATITIS C
     Dosage: DIVIDED DOSES ( 2 IN AM 3 IN PM)
     Route: 048
     Dates: start: 20110208
  4. MORPHINE [Concomitant]
     Indication: PAIN

REACTIONS (9)
  - BLOOD POTASSIUM DECREASED [None]
  - NAUSEA [None]
  - WEIGHT DECREASED [None]
  - FATIGUE [None]
  - HYPOTENSION [None]
  - VISUAL IMPAIRMENT [None]
  - DECREASED APPETITE [None]
  - DIZZINESS [None]
  - CONSTIPATION [None]
